FAERS Safety Report 19950374 (Version 1)
Quarter: 2021Q4

REPORT INFORMATION
  Report Type: Spontaneous
  Country: DE (occurrence: DE)
  Receive Date: 20211013
  Receipt Date: 20211013
  Transmission Date: 20220303
  Serious: Yes (Hospitalization)
  Sender: FDA-Public Use
  Company Number: DE-ADRED-05839-01

PATIENT
  Age: 78 Year
  Sex: Female

DRUGS (7)
  1. CIPROFLOXACIN [Suspect]
     Active Substance: CIPROFLOXACIN
     Indication: Product used for unknown indication
     Dosage: 500 MG, EINE ALS SELBSTMEDIKATION EINGENOMMEN UND ALLERGISCH REAGIERT, TABLETTEN
     Route: 048
  2. JANUMET [Suspect]
     Active Substance: METFORMIN HYDROCHLORIDE\SITAGLIPTIN PHOSPHATE
     Indication: Product used for unknown indication
     Dosage: UNK UNK, BID 1000|50 MG, 1-0-1-0, TABLETTEN
     Route: 048
  3. BISOPROLOL [Concomitant]
     Active Substance: BISOPROLOL
     Dosage: 5 MILLIGRAM, 0-0-1-0, RETARD-TABLETTEN
     Route: 048
  4. RAMICLAIR [Concomitant]
     Dosage: 10 MILLIGRAM, 1-0-0-0, TABLETTEN
     Route: 048
  5. AMLODIPINE BESYLATE [Concomitant]
     Active Substance: AMLODIPINE BESYLATE
     Dosage: 5 MILLIGRAM, 1-0-0-0, TABLETTEN
     Route: 048
  6. ATORVASTATIN [Concomitant]
     Active Substance: ATORVASTATIN
     Dosage: 20 MILLIGRAM, 0-0-1-0, TABLETTEN
     Route: 048
  7. ASPIRIN [Concomitant]
     Active Substance: ASPIRIN
     Dosage: 100 MILLIGRAM, 1-0-0-0, TABLETTEN
     Route: 048

REACTIONS (4)
  - Hyperglycaemia [Recovering/Resolving]
  - Eye pruritus [Recovering/Resolving]
  - Dizziness [Recovering/Resolving]
  - Eye swelling [Recovering/Resolving]
